FAERS Safety Report 6256468-1 (Version None)
Quarter: 2009Q3

REPORT INFORMATION
  Report Type: 
  Country: None (occurrence: None)
  Receive Date: 20090706
  Receipt Date: 20090701
  Transmission Date: 20100115
  Serious: Yes (Other)
  Sender: FDA-Public Use
  Company Number: US-BAYER-200918826NA

PATIENT
  Age: 72 Year
  Sex: Female

DRUGS (2)
  1. CIPRO [Suspect]
     Indication: URINARY TRACT INFECTION
     Dosage: TOTAL DAILY DOSE: 250 MG  UNIT DOSE: 250 MG
     Dates: start: 20090119, end: 20090122
  2. LISINOPRIL [Concomitant]

REACTIONS (3)
  - ARTHRALGIA [None]
  - MENISCUS LESION [None]
  - TENDON DISORDER [None]
